FAERS Safety Report 13139818 (Version 4)
Quarter: 2017Q3

REPORT INFORMATION
  Report Type: Spontaneous
  Country: KR (occurrence: KR)
  Receive Date: 20170123
  Receipt Date: 20170801
  Transmission Date: 20171127
  Serious: Yes (Hospitalization, Other)
  Sender: FDA-Public Use
  Company Number: KR-009507513-1701KOR008669

PATIENT
  Age: 75 Year
  Sex: Male
  Weight: 52.7 kg

DRUGS (48)
  1. ELOXATIN [Concomitant]
     Active Substance: OXALIPLATIN
     Dosage: STRENGTH: 100/20 MG/ML, 127 MG, ONCE, CYCLE 3
     Route: 042
     Dates: start: 20161018, end: 20161018
  2. ELOXATIN [Concomitant]
     Active Substance: OXALIPLATIN
     Dosage: STRENGTH: 100/20 MG/ML, 127 MG, ONCE, CYCLE 4
     Route: 042
     Dates: start: 20161101, end: 20161101
  3. ELOXATIN [Concomitant]
     Active Substance: OXALIPLATIN
     Dosage: STRENGTH: 100/20 MG/ML, 127 MG, ONCE, CYCLE 5
     Route: 042
     Dates: start: 20161128, end: 20161128
  4. DEXAMETHASONE SODIUM PHOSPHATE. [Concomitant]
     Active Substance: DEXAMETHASONE SODIUM PHOSPHATE
     Dosage: STRENGTH: 5 MG/ML, 10 MG, ONCE
     Route: 042
     Dates: start: 20161226, end: 20161226
  5. ALOXI [Concomitant]
     Active Substance: PALONOSETRON HYDROCHLORIDE
     Indication: PROPHYLAXIS OF NAUSEA AND VOMITING
     Dosage: 5 ML, ONCE
     Route: 042
     Dates: start: 20160919, end: 20160919
  6. GLUTATHIONE [Concomitant]
     Active Substance: GLUTATHIONE
     Dosage: 1200 MG, ONCE
     Route: 042
     Dates: start: 20161101, end: 20161101
  7. ALOXI [Concomitant]
     Active Substance: PALONOSETRON HYDROCHLORIDE
     Dosage: 5 ML, ONCE
     Route: 042
     Dates: start: 20161226, end: 20161226
  8. GLUTATHIONE [Concomitant]
     Active Substance: GLUTATHIONE
     Indication: PROPHYLAXIS
     Dosage: 1200 MG, ONCE
     Route: 042
     Dates: start: 20160919, end: 20160919
  9. EMEND (FOSAPREPITANT DIMEGLUMINE) [Suspect]
     Active Substance: FOSAPREPITANT DIMEGLUMINE
     Dosage: 150 MG, ONCE
     Route: 042
     Dates: start: 20161101, end: 20161101
  10. EMEND (FOSAPREPITANT DIMEGLUMINE) [Suspect]
     Active Substance: FOSAPREPITANT DIMEGLUMINE
     Dosage: 150 MG, ONCE
     Route: 042
     Dates: start: 20161128, end: 20161128
  11. ELOXATIN [Concomitant]
     Active Substance: OXALIPLATIN
     Dosage: STRENGTH: 100/20 MG/ML, 127 MG, ONCE, CYCLE 6
     Route: 042
     Dates: start: 20161226, end: 20161226
  12. ALOXI [Concomitant]
     Active Substance: PALONOSETRON HYDROCHLORIDE
     Dosage: 5 ML, ONCE
     Route: 042
     Dates: start: 20161018, end: 20161018
  13. TAGAMET [Concomitant]
     Active Substance: CIMETIDINE
     Dosage: 200 MG, ONCE
     Route: 042
     Dates: start: 20161004, end: 20161004
  14. TAGAMET [Concomitant]
     Active Substance: CIMETIDINE
     Dosage: 200 MG, ONCE
     Route: 042
     Dates: start: 20161101, end: 20161101
  15. EMEND (FOSAPREPITANT DIMEGLUMINE) [Suspect]
     Active Substance: FOSAPREPITANT DIMEGLUMINE
     Dosage: 150 MG, ONCE
     Route: 042
     Dates: start: 20161018, end: 20161018
  16. EMEND (FOSAPREPITANT DIMEGLUMINE) [Suspect]
     Active Substance: FOSAPREPITANT DIMEGLUMINE
     Dosage: 150 MG, ONCE
     Route: 042
     Dates: start: 20161226, end: 20161226
  17. ALOXI [Concomitant]
     Active Substance: PALONOSETRON HYDROCHLORIDE
     Dosage: 5 ML, ONCE
     Route: 042
     Dates: start: 20161101, end: 20161101
  18. MYTONIN [Concomitant]
     Indication: BENIGN PROSTATIC HYPERPLASIA
     Dosage: 1 TABLET, BID
     Route: 048
     Dates: start: 2012
  19. GLUTATHIONE [Concomitant]
     Active Substance: GLUTATHIONE
     Dosage: 1200 MG, ONCE
     Route: 042
     Dates: start: 20161004, end: 20161004
  20. TAGAMET [Concomitant]
     Active Substance: CIMETIDINE
     Indication: PROPHYLAXIS
     Dosage: 200 MG, ONCE
     Route: 042
     Dates: start: 20160919, end: 20160919
  21. EMEND (FOSAPREPITANT DIMEGLUMINE) [Suspect]
     Active Substance: FOSAPREPITANT DIMEGLUMINE
     Dosage: 150 MG, ONCE
     Route: 042
     Dates: start: 20161004, end: 20161004
  22. FLUOROURACIL. [Concomitant]
     Active Substance: FLUOROURACIL
     Dosage: STRENGTH: 1000/20 MG/ML, 2400 MG, QD, CYCLE 4
     Route: 042
     Dates: start: 20161128, end: 20161129
  23. FLUOROURACIL. [Concomitant]
     Active Substance: FLUOROURACIL
     Dosage: STRENGTH: 1000/20 MG/ML, 2400 MG, QD, CYCLE 4
     Route: 042
     Dates: start: 20161226, end: 20161227
  24. DEXAMETHASONE SODIUM PHOSPHATE. [Concomitant]
     Active Substance: DEXAMETHASONE SODIUM PHOSPHATE
     Dosage: STRENGTH: 5 MG/ML, 10 MG, ONCE
     Route: 042
     Dates: start: 20161101, end: 20161101
  25. ALOXI [Concomitant]
     Active Substance: PALONOSETRON HYDROCHLORIDE
     Dosage: 5 ML, ONCE
     Route: 042
     Dates: start: 20161004, end: 20161004
  26. HARNAL [Concomitant]
     Active Substance: TAMSULOSIN HYDROCHLORIDE
     Indication: BENIGN PROSTATIC HYPERPLASIA
     Dosage: 2 TABLET, QD
     Route: 048
     Dates: start: 2012
  27. DUVIE [Concomitant]
     Indication: DIABETES MELLITUS
     Dosage: 1 DF, QD
     Route: 048
  28. FLUOROURACIL. [Concomitant]
     Active Substance: FLUOROURACIL
     Dosage: STRENGTH: 1000/20 MG/ML, 2400 MG, QD, CYCLE 3
     Route: 042
     Dates: start: 20161018, end: 20161019
  29. FLUOROURACIL. [Concomitant]
     Active Substance: FLUOROURACIL
     Dosage: STRENGTH: 1000/20 MG/ML, 2400 MG, QD, CYCLE 4
     Route: 042
     Dates: start: 20161101, end: 20161102
  30. ALOXI [Concomitant]
     Active Substance: PALONOSETRON HYDROCHLORIDE
     Dosage: 5 ML, ONCE
     Route: 042
     Dates: start: 20161128, end: 20161128
  31. DOXOFYLLINE [Concomitant]
     Active Substance: DOXOFYLLINE
     Indication: CHRONIC OBSTRUCTIVE PULMONARY DISEASE
     Dosage: 1 TABLET, BID
     Route: 048
     Dates: start: 2012
  32. TAGAMET [Concomitant]
     Active Substance: CIMETIDINE
     Dosage: 200 MG, ONCE
     Route: 042
     Dates: start: 20161226, end: 20161226
  33. ROSUZET COMPOSITE PACK [Concomitant]
     Active Substance: EZETIMIBE\ROSUVASTATIN
     Indication: PROPHYLAXIS
     Dosage: 1 TABLET, QD
     Route: 048
  34. EMEND (FOSAPREPITANT DIMEGLUMINE) [Suspect]
     Active Substance: FOSAPREPITANT DIMEGLUMINE
     Indication: PROPHYLAXIS OF NAUSEA AND VOMITING
     Dosage: 150 MG, ONCE
     Route: 042
     Dates: start: 20160919, end: 20160919
  35. FLUOROURACIL. [Concomitant]
     Active Substance: FLUOROURACIL
     Indication: CHEMOTHERAPY
     Dosage: STRENGTH: 1000/20 MG/ML, 2400 MG, QD, CYCLE 1
     Route: 042
     Dates: start: 20160919, end: 20160920
  36. DEXAMETHASONE SODIUM PHOSPHATE. [Concomitant]
     Active Substance: DEXAMETHASONE SODIUM PHOSPHATE
     Indication: PROPHYLAXIS OF NAUSEA AND VOMITING
     Dosage: STRENGTH: 5 MG/ML, 10 MG, ONCE
     Route: 042
     Dates: start: 20160919, end: 20160919
  37. DEXAMETHASONE SODIUM PHOSPHATE. [Concomitant]
     Active Substance: DEXAMETHASONE SODIUM PHOSPHATE
     Dosage: STRENGTH: 5 MG/ML, 10 MG, ONCE
     Route: 042
     Dates: start: 20161004, end: 20161004
  38. DEXAMETHASONE SODIUM PHOSPHATE. [Concomitant]
     Active Substance: DEXAMETHASONE SODIUM PHOSPHATE
     Dosage: STRENGTH: 5 MG/ML, 10 MG, ONCE
     Route: 042
     Dates: start: 20161018, end: 20161018
  39. DEXAMETHASONE SODIUM PHOSPHATE. [Concomitant]
     Active Substance: DEXAMETHASONE SODIUM PHOSPHATE
     Dosage: STRENGTH: 5 MG/ML, 10 MG, ONCE
     Route: 042
     Dates: start: 20161128, end: 20161128
  40. GLUTATHIONE [Concomitant]
     Active Substance: GLUTATHIONE
     Dosage: 1200 MG, ONCE
     Route: 042
     Dates: start: 20161018, end: 20161018
  41. GLIMEL (GLIMEPIRIDE) [Concomitant]
     Indication: DIABETES MELLITUS
     Dosage: 1 TABLET, QD
     Route: 048
  42. ELOXATIN [Concomitant]
     Active Substance: OXALIPLATIN
     Indication: CHEMOTHERAPY
     Dosage: STRENGTH: 100/20 MG/ML, 127 MG, ONCE, CYCLE 1
     Route: 042
     Dates: start: 20160919, end: 20160919
  43. ELOXATIN [Concomitant]
     Active Substance: OXALIPLATIN
     Dosage: STRENGTH: 100/20 MG/ML, 127 MG, ONCE, CYCLE 2
     Route: 042
     Dates: start: 20161004, end: 20161004
  44. FLUOROURACIL. [Concomitant]
     Active Substance: FLUOROURACIL
     Dosage: STRENGTH: 1000/20 MG/ML, 2400 MG, QD, CYCLE 2
     Route: 042
     Dates: start: 20161004, end: 20161005
  45. GLUTATHIONE [Concomitant]
     Active Substance: GLUTATHIONE
     Dosage: 1200 MG, ONCE
     Route: 042
     Dates: start: 20161128, end: 20161128
  46. TAGAMET [Concomitant]
     Active Substance: CIMETIDINE
     Dosage: 200 MG, ONCE
     Route: 042
     Dates: start: 20161018, end: 20161018
  47. TAGAMET [Concomitant]
     Active Substance: CIMETIDINE
     Dosage: 200 MG, ONCE
     Route: 042
     Dates: start: 20161128, end: 20161128
  48. SCARTERON [Concomitant]
     Indication: BENIGN PROSTATIC HYPERPLASIA
     Dosage: 1 TABLET, QD
     Route: 048
     Dates: start: 2012

REACTIONS (6)
  - Abdominal pain [Recovered/Resolved]
  - Melaena [Recovered/Resolved]
  - Diarrhoea [Recovered/Resolved]
  - Asthenia [Recovered/Resolved]
  - Diarrhoea [Recovered/Resolved]
  - Drug ineffective [Unknown]

NARRATIVE: CASE EVENT DATE: 20161004
